FAERS Safety Report 16703252 (Version 1)
Quarter: 2019Q3

REPORT INFORMATION
  Report Type: Report from Study
  Country: US (occurrence: US)
  Receive Date: 20190814
  Receipt Date: 20190814
  Transmission Date: 20191004
  Serious: No
  Sender: FDA-Public Use
  Company Number: US-AEGERION PHARMACEUTICAL, INC-AEGR003953

PATIENT
  Sex: Female
  Weight: 70.3 kg

DRUGS (1)
  1. JUXTAPID [Suspect]
     Active Substance: LOMITAPIDE MESYLATE
     Indication: TYPE IIA HYPERLIPIDAEMIA
     Dosage: 5 MG, ONE EVERY OTHER DAY
     Route: 048

REACTIONS (4)
  - Osteoporosis [Unknown]
  - Chest pain [Unknown]
  - Blood pressure increased [Unknown]
  - Therapy cessation [Unknown]
